FAERS Safety Report 17847683 (Version 43)
Quarter: 2025Q1

REPORT INFORMATION
  Report Type: Report from Study
  Country: US (occurrence: US)
  Receive Date: 20200601
  Receipt Date: 20250221
  Transmission Date: 20250409
  Serious: Yes (Hospitalization, Other)
  Sender: TAKEDA
  Company Number: US-SHIRE-US202017774

PATIENT
  Age: 50 Year
  Sex: Female
  Weight: 71 kg

DRUGS (97)
  1. HUMAN IMMUNOGLOBULIN G [Suspect]
     Active Substance: HUMAN IMMUNOGLOBULIN G
     Indication: Immunodeficiency common variable
     Dosage: 25 GRAM, 1/WEEK
     Dates: start: 20170613
  2. HUMAN IMMUNOGLOBULIN G [Suspect]
     Active Substance: HUMAN IMMUNOGLOBULIN G
     Dosage: 35 GRAM, Q2WEEKS
     Dates: start: 20181029
  3. HUMAN IMMUNOGLOBULIN G [Suspect]
     Active Substance: HUMAN IMMUNOGLOBULIN G
     Dosage: 20 GRAM, 1/WEEK
  4. HUMAN IMMUNOGLOBULIN G [Suspect]
     Active Substance: HUMAN IMMUNOGLOBULIN G
     Dosage: 35 GRAM, Q2WEEKS
     Dates: start: 20181031
  5. HUMAN IMMUNOGLOBULIN G [Suspect]
     Active Substance: HUMAN IMMUNOGLOBULIN G
     Dosage: 17 GRAM, Q2WEEKS
  6. HUMAN IMMUNOGLOBULIN G [Suspect]
     Active Substance: HUMAN IMMUNOGLOBULIN G
     Dosage: 20 GRAM, 1/WEEK
  7. HUMAN IMMUNOGLOBULIN G [Suspect]
     Active Substance: HUMAN IMMUNOGLOBULIN G
     Dosage: 22 GRAM, 1/WEEK
  8. XEMBIFY [Suspect]
     Active Substance: HUMAN IMMUNOGLOBULIN G
     Indication: Product used for unknown indication
  9. DUPIXENT [Suspect]
     Active Substance: DUPILUMAB
     Indication: Product used for unknown indication
  10. ACETAMINOPHEN [Concomitant]
     Active Substance: ACETAMINOPHEN
  11. DIPHENHYDRAMINE [Concomitant]
     Active Substance: DIPHENHYDRAMINE
  12. EPINEPHRINE [Concomitant]
     Active Substance: EPINEPHRINE
  13. Lmx [Concomitant]
  14. GLIPIZIDE [Concomitant]
     Active Substance: GLIPIZIDE
  15. SPIRIVA RESPIMAT [Concomitant]
     Active Substance: TIOTROPIUM BROMIDE
  16. METFORMIN [Concomitant]
     Active Substance: METFORMIN HYDROCHLORIDE
  17. DELSYM [Concomitant]
     Active Substance: DEXTROMETHORPHAN
  18. ZOFRAN [Concomitant]
     Active Substance: ONDANSETRON HYDROCHLORIDE
  19. PANTOPRAZOLE [Concomitant]
     Active Substance: PANTOPRAZOLE
  20. KETOCONAZOLE [Concomitant]
     Active Substance: KETOCONAZOLE
  21. ADVAIR HFA [Concomitant]
     Active Substance: FLUTICASONE PROPIONATE\SALMETEROL XINAFOATE
  22. ATIVAN [Concomitant]
     Active Substance: LORAZEPAM
  23. ZYRTEC [Concomitant]
     Active Substance: CETIRIZINE HYDROCHLORIDE
  24. MAGNESIUM OXIDE [Concomitant]
     Active Substance: MAGNESIUM OXIDE
  25. EMGALITY [Concomitant]
     Active Substance: GALCANEZUMAB-GNLM
  26. BACLOFEN [Concomitant]
     Active Substance: BACLOFEN
  27. TORSEMIDE [Concomitant]
     Active Substance: TORSEMIDE
  28. PREDNISONE [Concomitant]
     Active Substance: PREDNISONE
  29. FLUDROCORTISONE [Concomitant]
     Active Substance: FLUDROCORTISONE
  30. DILTIAZEM [Concomitant]
     Active Substance: DILTIAZEM
  31. NORCO [Concomitant]
     Active Substance: ACETAMINOPHEN\HYDROCODONE BITARTRATE
  32. VITAMIN D3 [Concomitant]
     Active Substance: CHOLECALCIFEROL
  33. BENZONATATE [Concomitant]
     Active Substance: BENZONATATE
  34. SINGULAIR [Concomitant]
     Active Substance: MONTELUKAST SODIUM
     Indication: Product used for unknown indication
  35. FAMOTIDINE [Concomitant]
     Active Substance: FAMOTIDINE
  36. MIDODRINE [Concomitant]
     Active Substance: MIDODRINE
  37. CRESTOR [Concomitant]
     Active Substance: ROSUVASTATIN CALCIUM
  38. MOVANTIK [Concomitant]
     Active Substance: NALOXEGOL OXALATE
  39. SPIRONOLACTONE [Concomitant]
     Active Substance: SPIRONOLACTONE
  40. ALBUTEROL SULFATE [Concomitant]
     Active Substance: ALBUTEROL SULFATE
  41. PRADAXA [Concomitant]
     Active Substance: DABIGATRAN ETEXILATE MESYLATE
  42. FIORICET [Concomitant]
     Active Substance: ACETAMINOPHEN\BUTALBITAL\CAFFEINE
  43. PROAIR HFA [Concomitant]
     Active Substance: ALBUTEROL SULFATE
  44. POTASSIUM CHLORIDE [Concomitant]
     Active Substance: POTASSIUM CHLORIDE
  45. LIDOCAINE [Concomitant]
     Active Substance: LIDOCAINE
  46. BACTRIM [Concomitant]
     Active Substance: SULFAMETHOXAZOLE\TRIMETHOPRIM
  47. CHLORHEXIDINE GLUCONATE [Concomitant]
     Active Substance: CHLORHEXIDINE GLUCONATE
  48. CIPROFLOXACIN [Concomitant]
     Active Substance: CIPROFLOXACIN
  49. LEVALBUTEROL [Concomitant]
     Active Substance: LEVALBUTEROL
  50. ACYCLOVIR [Concomitant]
     Active Substance: ACYCLOVIR
  51. CITALOPRAM [Concomitant]
     Active Substance: CITALOPRAM
  52. MEGESTROL ACETATE [Concomitant]
     Active Substance: MEGESTROL ACETATE
  53. SYMBICORT [Concomitant]
     Active Substance: BUDESONIDE\FORMOTEROL FUMARATE DIHYDRATE
  54. CYCLOBENZAPRINE [Concomitant]
     Active Substance: CYCLOBENZAPRINE
  55. BUDESONIDE [Concomitant]
     Active Substance: BUDESONIDE
  56. PROMETHAZINE [Concomitant]
     Active Substance: PROMETHAZINE HYDROCHLORIDE
  57. OXYCODONE [Concomitant]
     Active Substance: OXYCODONE
  58. SUMATRIPTAN [Concomitant]
     Active Substance: SUMATRIPTAN
  59. FLUTICASONE PROPIONATE [Concomitant]
     Active Substance: FLUTICASONE PROPIONATE
  60. PATADAY [Concomitant]
     Active Substance: OLOPATADINE HYDROCHLORIDE
  61. PULMICORT TURBUHALER [Concomitant]
     Active Substance: BUDESONIDE
  62. ZANAFLEX [Concomitant]
     Active Substance: TIZANIDINE HYDROCHLORIDE
  63. BENADRYL [Concomitant]
     Active Substance: DIPHENHYDRAMINE HYDROCHLORIDE
  64. HIZENTRA [Concomitant]
     Active Substance: HUMAN IMMUNOGLOBULIN G
  65. PERFOROMIST [Concomitant]
     Active Substance: FORMOTEROL FUMARATE DIHYDRATE
  66. TYLENOL [Concomitant]
     Active Substance: ACETAMINOPHEN
  67. DIAZEPAM [Concomitant]
     Active Substance: DIAZEPAM
  68. AZELASTINE [Concomitant]
     Active Substance: AZELASTINE
  69. XOPENEX [Concomitant]
     Active Substance: LEVALBUTEROL HYDROCHLORIDE
  70. POTASSIUM [Concomitant]
     Active Substance: POTASSIUM
  71. ALBUTEROL [Concomitant]
     Active Substance: ALBUTEROL
  72. MAGNESIUM [Concomitant]
     Active Substance: MAGNESIUM
  73. HYDROCODONE [Concomitant]
     Active Substance: HYDROCODONE
  74. SERTRALINE HYDROCHLORIDE [Concomitant]
     Active Substance: SERTRALINE HYDROCHLORIDE
  75. ELIQUIS [Concomitant]
     Active Substance: APIXABAN
  76. LYRICA [Concomitant]
     Active Substance: PREGABALIN
  77. REGLAN [Concomitant]
     Active Substance: METOCLOPRAMIDE HYDROCHLORIDE
  78. TRAMADOL [Concomitant]
     Active Substance: TRAMADOL
  79. IBUPROFEN [Concomitant]
     Active Substance: IBUPROFEN
     Indication: Product used for unknown indication
  80. CODEINE PHOSPHATE AND GUAIFENESIN [Concomitant]
     Active Substance: CODEINE PHOSPHATE\GUAIFENESIN
  81. CYMBALTA [Concomitant]
     Active Substance: DULOXETINE HYDROCHLORIDE
  82. NEURONTIN [Concomitant]
     Active Substance: GABAPENTIN
  83. DULERA [Concomitant]
     Active Substance: FORMOTEROL FUMARATE DIHYDRATE\MOMETASONE FUROATE
  84. PSEUDOEPHEDRINE [Concomitant]
     Active Substance: PSEUDOEPHEDRINE
  85. ACETAMINOPHEN\HYDROCODONE [Concomitant]
     Active Substance: ACETAMINOPHEN\HYDROCODONE
  86. FENOFIBRATE [Concomitant]
     Active Substance: FENOFIBRATE
  87. METHOCARBAMOL [Concomitant]
     Active Substance: METHOCARBAMOL
  88. FLUDROCORTISONE ACETATE [Concomitant]
     Active Substance: FLUDROCORTISONE ACETATE
  89. METFORMIN HYDROCHLORIDE [Concomitant]
     Active Substance: METFORMIN HYDROCHLORIDE
  90. DILTIAZEM HYDROCHLORIDE [Concomitant]
     Active Substance: DILTIAZEM HYDROCHLORIDE
  91. MIDODRINE HYDROCHLORIDE [Concomitant]
     Active Substance: MIDODRINE HYDROCHLORIDE
  92. VITAMIN C [Concomitant]
     Active Substance: ASCORBIC ACID
  93. LINZESS [Concomitant]
     Active Substance: LINACLOTIDE
  94. KRILL OIL [Concomitant]
     Active Substance: DIETARY SUPPLEMENT\KRILL OIL
  95. VITAMIN E [Concomitant]
     Active Substance: .ALPHA.-TOCOPHEROL
  96. B ACTIVE [Concomitant]
  97. DIPHENHYDRAMINE HYDROCHLORIDE [Concomitant]
     Active Substance: DIPHENHYDRAMINE HYDROCHLORIDE

REACTIONS (43)
  - Lower limb fracture [Unknown]
  - Pneumonia [Unknown]
  - Nephrolithiasis [Unknown]
  - Clostridium difficile colitis [Unknown]
  - Impaired gastric emptying [Unknown]
  - Thrombosis [Unknown]
  - Infusion related reaction [Unknown]
  - COVID-19 [Recovered/Resolved]
  - Bronchitis [Not Recovered/Not Resolved]
  - Sensitive skin [Unknown]
  - Skin discolouration [Unknown]
  - Dysphagia [Unknown]
  - Illness [Unknown]
  - Infection [Unknown]
  - Gait inability [Unknown]
  - Post procedural discharge [Unknown]
  - Speech disorder [Unknown]
  - Asthma [Unknown]
  - Post procedural infection [Unknown]
  - Drug hypersensitivity [Unknown]
  - Inappropriate schedule of product administration [Unknown]
  - Product dose omission issue [Unknown]
  - Product prescribing issue [Unknown]
  - Rib fracture [Unknown]
  - Skin infection [Unknown]
  - Herpes zoster [Unknown]
  - Sinusitis [Recovering/Resolving]
  - Infusion site haemorrhage [Unknown]
  - Contusion [Unknown]
  - Injection site warmth [Unknown]
  - Infusion site warmth [Recovered/Resolved]
  - Injection site reaction [Unknown]
  - Anaemia [Unknown]
  - Swelling [Recovered/Resolved]
  - Feeling hot [Unknown]
  - Infusion site bruising [Unknown]
  - Pain [Unknown]
  - Infusion site erythema [Recovered/Resolved]
  - Infusion site swelling [Recovered/Resolved]
  - Infusion site pruritus [Unknown]
  - Infusion site pain [Recovered/Resolved]
  - Headache [Recovered/Resolved]
  - Fatigue [Recovered/Resolved]

NARRATIVE: CASE EVENT DATE: 20210814
